FAERS Safety Report 5786639-X (Version None)
Quarter: 2008Q2

REPORT INFORMATION
  Report Type: 
  Country: None (occurrence: None)
  Receive Date: 20080618
  Receipt Date: 20080606
  Transmission Date: 20081010
  Serious: Yes (Life-Threatening, Hospitalization, Other)
  Sender: FDA-Public Use
  Company Number: NARC20080002

PATIENT
  Age: 3 Day
  Sex: Female

DRUGS (2)
  1. NARCAN [Suspect]
     Indication: THERAPEUTIC AGENT TOXICITY
     Dosage: 1.5 ML IV
     Route: 042
     Dates: start: 20080217, end: 20080217
  2. MORPHINE [Suspect]
     Dosage: 0.85 MG/KG, DAILY IV
     Route: 042
     Dates: start: 20080217

REACTIONS (14)
  - ACCIDENTAL OVERDOSE [None]
  - AGITATION NEONATAL [None]
  - DRUG INTERACTION [None]
  - DYSPNOEA [None]
  - HYPERHIDROSIS [None]
  - HYPERTENSION [None]
  - NEONATAL DISORDER [None]
  - OXYGEN SATURATION DECREASED [None]
  - SALIVARY HYPERSECRETION [None]
  - SNEEZING [None]
  - TACHYCARDIA [None]
  - WHEEZING [None]
  - WITHDRAWAL SYNDROME [None]
  - YAWNING [None]
